FAERS Safety Report 12127080 (Version 1)
Quarter: 2016Q1

REPORT INFORMATION
  Report Type: Spontaneous
  Country: US (occurrence: US)
  Receive Date: 20160226
  Receipt Date: 20160226
  Transmission Date: 20160526
  Serious: Yes (Other)
  Sender: FDA-Public Use
  Company Number: US-JNJFOC-20160215673

PATIENT
  Age: 11 Month
  Sex: Female
  Weight: 8.62 kg

DRUGS (1)
  1. DESITIN MAXIMUM STRENGTH ORIGINAL [Suspect]
     Active Substance: ZINC OXIDE
     Indication: RASH
     Dosage: A GENEROUS AMOUNT AS NEEDED, NOT OFTEN.
     Route: 067
     Dates: start: 20160205, end: 20160215

REACTIONS (5)
  - Product quality issue [Unknown]
  - Rash [Recovering/Resolving]
  - Product physical consistency issue [None]
  - Incorrect route of drug administration [Unknown]
  - Infection [Unknown]

NARRATIVE: CASE EVENT DATE: 201602
